FAERS Safety Report 20835086 (Version 1)
Quarter: 2022Q2

REPORT INFORMATION
  Report Type: 
  Country: None (occurrence: None)
  Receive Date: 20220516
  Receipt Date: 20220516
  Transmission Date: 20220721
  Serious: No
  Sender: FDA-Public Use
  Company Number: CA-ROCHE-1465397

PATIENT
  Age: 53 Year
  Weight: 66 kg

DRUGS (18)
  1. RITUXAN [Suspect]
     Active Substance: RITUXIMAB
     Dates: start: 20140828, end: 20140919
  2. RITUXAN [Suspect]
     Active Substance: RITUXIMAB
     Dates: start: 20140919
  3. RITUXAN [Suspect]
     Active Substance: RITUXIMAB
     Dosage: MOST RECENT DOSE ON 19/JUN/2017
     Dates: start: 20150319
  4. RITUXAN [Suspect]
     Active Substance: RITUXIMAB
     Dosage: MOST RECENT DOSE ON 19/JUN/2017
     Dates: start: 20140319
  5. METHYLPREDNISOLONE [Concomitant]
     Active Substance: METHYLPREDNISOLONE
  6. CYCLOPHOSPHAMIDE [Concomitant]
     Active Substance: CYCLOPHOSPHAMIDE
  7. TYLENOL [Concomitant]
     Active Substance: ACETAMINOPHEN
  8. PREDNISONE [Concomitant]
     Active Substance: PREDNISONE
     Dosage: 3.5 TABS TAPERING 0.5 MG Q MONTH
  9. PREDNISONE [Concomitant]
     Active Substance: PREDNISONE
  10. ASPIRIN [Concomitant]
     Active Substance: ASPIRIN
  11. SULFATRIM [Concomitant]
     Active Substance: SULFAMETHOXAZOLE\TRIMETHOPRIM
  12. ALENDRONATE SODIUM [Concomitant]
     Active Substance: ALENDRONATE SODIUM
  13. LOSEC [Concomitant]
     Active Substance: OMEPRAZOLE
  14. ANAPROX [Concomitant]
     Active Substance: NAPROXEN SODIUM
     Dosage: AS NEEDED.
  15. DIPHENHYDRAMINE HYDROCHLORIDE [Concomitant]
     Active Substance: DIPHENHYDRAMINE HYDROCHLORIDE
  16. ACETAMINOPHEN [Concomitant]
     Active Substance: ACETAMINOPHEN
  17. BENADRYL [Concomitant]
     Active Substance: DIPHENHYDRAMINE HYDROCHLORIDE
     Dates: start: 20140828
  18. SOLU-MEDROL [Concomitant]
     Active Substance: METHYLPREDNISOLONE SODIUM SUCCINATE
     Dates: start: 20140828

REACTIONS (19)
  - Memory impairment [None]
  - Heart rate increased [None]
  - Pain [None]
  - Malaise [None]
  - Frustration tolerance decreased [None]
  - Oxygen saturation decreased [None]
  - Arthralgia [None]
  - Dyspnoea [None]
  - Oxygen saturation decreased [None]
  - Dyspnoea exertional [None]
  - Bronchitis [None]
  - Blood pressure systolic increased [None]
  - Blood pressure systolic abnormal [None]
  - Blood pressure diastolic abnormal [None]
  - Headache [None]
  - Lower respiratory tract congestion [None]
  - Rhinovirus infection [None]
  - Blood pressure diastolic decreased [None]
  - Blood pressure fluctuation [None]

NARRATIVE: CASE EVENT DATE: 20140919
